FAERS Safety Report 4582923-6 (Version None)
Quarter: 2005Q1

REPORT INFORMATION
  Report Type: 
  Country: None (occurrence: None)
  Receive Date: 20050127
  Receipt Date: 20040915
  Transmission Date: 20050727
  Serious: No
  Sender: FDA-Public Use
  Company Number: USA040978336

PATIENT
  Age: 7 Year
  Sex: Male
  Weight: 43 kg

DRUGS (4)
  1. STRATTERA [Suspect]
     Indication: ATTENTION DEFICIT/HYPERACTIVITY DISORDER
     Dosage: 18 MG DAY
     Dates: start: 20040914
  2. PREVACID [Concomitant]
  3. RITALIN [Concomitant]
  4. CONCERTA [Concomitant]

REACTIONS (8)
  - ABDOMINAL PAIN UPPER [None]
  - AGITATION [None]
  - FATIGUE [None]
  - FEELING ABNORMAL [None]
  - FLAT AFFECT [None]
  - MIDDLE INSOMNIA [None]
  - RESTLESSNESS [None]
  - TREMOR [None]
